FAERS Safety Report 24148772 (Version 6)
Quarter: 2024Q4

REPORT INFORMATION
  Report Type: Report from Study
  Country: RU (occurrence: RU)
  Receive Date: 20240729
  Receipt Date: 20241230
  Transmission Date: 20250115
  Serious: Yes (Other)
  Sender: NOVARTIS
  Company Number: RU-002147023-NVSC2024RU152398

PATIENT
  Age: 0 Year
  Sex: Female
  Weight: 4.2 kg

DRUGS (4)
  1. ZOLGENSMA [Suspect]
     Active Substance: ONASEMNOGENE ABEPARVOVEC-XIOI
     Indication: Spinal muscular atrophy
     Dosage: 24.8 ML, ONCE/SINGLE
     Route: 041
     Dates: start: 20240607, end: 20240607
  2. CHOLECALCIFEROL [Concomitant]
     Active Substance: CHOLECALCIFEROL
     Indication: Product used for unknown indication
     Dosage: 2 DRP, QD ( 2 DROPS OF 1000 IU)
     Route: 065
     Dates: start: 20240606
  3. ESOMEPRAZOLE [Concomitant]
     Active Substance: ESOMEPRAZOLE
     Indication: Product used for unknown indication
     Dosage: 0.5 DOSAGE FORM (HALF SACHET), QD
     Route: 065
     Dates: start: 20240607
  4. PREDNISOLONE [Concomitant]
     Active Substance: PREDNISOLONE
     Indication: Product used for unknown indication
     Dosage: 5 MG, QD (AFTER A MEAL IN THE MORNING)
     Route: 065
     Dates: start: 20240607

REACTIONS (8)
  - Blood test abnormal [Recovering/Resolving]
  - Body temperature increased [Unknown]
  - Anaemia [Recovered/Resolved]
  - Erythropenia [Recovered/Resolved]
  - Leukocytosis [Recovered/Resolved]
  - Blood creatinine decreased [Unknown]
  - Troponin I increased [Not Recovered/Not Resolved]
  - Aspartate aminotransferase increased [Unknown]

NARRATIVE: CASE EVENT DATE: 20240608
